FAERS Safety Report 9128175 (Version 1)
Quarter: 2013Q1

REPORT INFORMATION
  Report Type: Spontaneous
  Country: US (occurrence: US)
  Receive Date: 20130122
  Receipt Date: 20130122
  Transmission Date: 20140127
  Serious: Yes (Other)
  Sender: FDA-Public Use
  Company Number: US-BAYER-2013-006815

PATIENT
  Sex: 0

DRUGS (1)
  1. ALKA-SELTZER PLUS COLD FORMULA ORANGE ZEST [Suspect]
     Dosage: UNK
     Route: 047
     Dates: start: 20130115

REACTIONS (3)
  - Ocular discomfort [None]
  - Accidental exposure to product [None]
  - Eyelid pain [None]
